FAERS Safety Report 5457282-7 (Version None)
Quarter: 2007Q3

REPORT INFORMATION
  Report Type: 
  Country: None (occurrence: None)
  Receive Date: 20070918
  Receipt Date: 20070702
  Transmission Date: 20080115
  Serious: Yes (Hospitalization)
  Sender: FDA-Public Use
  Company Number: US-ASTRAZENECA-2007UW01955

PATIENT
  Age: 586 Month
  Sex: Female
  Weight: 84.1 kg

DRUGS (8)
  1. SEROQUEL [Suspect]
     Indication: SCHIZOPHRENIA
     Route: 048
     Dates: start: 19980101, end: 20040101
  2. SEROQUEL [Suspect]
     Indication: BIPOLAR I DISORDER
     Route: 048
     Dates: start: 19980101, end: 20040101
  3. GEODON [Concomitant]
     Dates: start: 20040101
  4. ZYPREXA [Concomitant]
     Dates: start: 20010101, end: 20040101
  5. PROZAC [Concomitant]
  6. ELAVIL [Concomitant]
  7. GLUCOPHAGE [Concomitant]
     Dates: start: 20060401
  8. CRESTOR [Concomitant]
     Dates: start: 20060501

REACTIONS (6)
  - BLOOD CHOLESTEROL INCREASED [None]
  - BLOOD TRIGLYCERIDES INCREASED [None]
  - DIABETES MELLITUS [None]
  - PNEUMONIA [None]
  - SUICIDE ATTEMPT [None]
  - WEIGHT INCREASED [None]
